FAERS Safety Report 15027482 (Version 2)
Quarter: 2018Q3

REPORT INFORMATION
  Report Type: Spontaneous
  Country: FR (occurrence: FR)
  Receive Date: 20180619
  Receipt Date: 20180709
  Transmission Date: 20181010
  Serious: Yes (Other)
  Sender: FDA-Public Use
  Company Number: FR-AUROBINDO-AUR-APL-2018-032050

PATIENT
  Age: 27 Year
  Sex: Female
  Weight: 42 kg

DRUGS (26)
  1. DOXORUBICIN [Suspect]
     Active Substance: DOXORUBICIN
     Indication: DIFFUSE LARGE B-CELL LYMPHOMA
     Dosage: CYCLICAL
     Route: 065
  2. PREDNISONE. [Suspect]
     Active Substance: PREDNISONE
     Dosage: UNK ()
  3. METHOTREXATE. [Suspect]
     Active Substance: METHOTREXATE
     Dosage: CONSOLIDATION WITH 2 INFUSIONS ()
     Route: 037
  4. CYCLOPHOSPHAMIDE. [Suspect]
     Active Substance: CYCLOPHOSPHAMIDE
     Indication: DIFFUSE LARGE B-CELL LYMPHOMA
     Dosage: CYCLICAL
     Route: 065
  5. CYCLOPHOSPHAMIDE. [Suspect]
     Active Substance: CYCLOPHOSPHAMIDE
     Dosage: ()CYCLICAL
  6. DOXORUBICIN [Suspect]
     Active Substance: DOXORUBICIN
     Dosage: ()CYCLICAL
  7. PREDNISONE. [Suspect]
     Active Substance: PREDNISONE
     Dosage: ()CYCLICAL
  8. BLEOMYCIN [Suspect]
     Active Substance: BLEOMYCIN SULFATE
     Dosage: ()CYCLICAL
  9. PREDNISONE. [Suspect]
     Active Substance: PREDNISONE
     Indication: DIFFUSE LARGE B-CELL LYMPHOMA
     Dosage: CYCLICAL
     Route: 065
  10. METHOTREXATE. [Suspect]
     Active Substance: METHOTREXATE
     Dosage: CONSOLIDATION WITH 2 INFUSIONS ()
  11. RITUXIMAB. [Suspect]
     Active Substance: RITUXIMAB
     Dosage: ()
  12. PREDNISONE. [Suspect]
     Active Substance: PREDNISONE
     Dosage: UNK ()
  13. METHOTREXATE. [Suspect]
     Active Substance: METHOTREXATE
     Indication: DIFFUSE LARGE B-CELL LYMPHOMA
     Dosage: CYCLICAL
     Route: 037
  14. METHOTREXATE. [Suspect]
     Active Substance: METHOTREXATE
     Dosage: CONSOLIDATION WITH 2 INFUSIONS ()
     Route: 037
  15. METHOTREXATE. [Suspect]
     Active Substance: METHOTREXATE
     Dosage: ()CYCLICAL
     Route: 037
  16. RITUXIMAB. [Suspect]
     Active Substance: RITUXIMAB
     Dosage: ()
  17. CYCLOPHOSPHAMIDE. [Suspect]
     Active Substance: CYCLOPHOSPHAMIDE
     Dosage: ()
  18. DOXORUBICIN [Suspect]
     Active Substance: DOXORUBICIN
     Dosage: ()
  19. RITUXIMAB. [Suspect]
     Active Substance: RITUXIMAB
     Indication: DIFFUSE LARGE B-CELL LYMPHOMA
     Dosage: CYCLICAL
     Route: 065
  20. VINCRISTINE [Suspect]
     Active Substance: VINCRISTINE
     Dosage: ()CYCLICAL
  21. DOXORUBICIN [Suspect]
     Active Substance: DOXORUBICIN
     Dosage: ()
  22. RITUXIMAB. [Suspect]
     Active Substance: RITUXIMAB
     Dosage: ()CYCLICAL
  23. METHOTREXATE. [Suspect]
     Active Substance: METHOTREXATE
     Dosage: CONSOLIDATION WITH 2 INFUSIONS
     Route: 037
  24. BLEOMYCIN [Suspect]
     Active Substance: BLEOMYCIN SULFATE
     Indication: DIFFUSE LARGE B-CELL LYMPHOMA
     Dosage: CYCLICAL
     Route: 065
  25. CYCLOPHOSPHAMIDE. [Suspect]
     Active Substance: CYCLOPHOSPHAMIDE
     Dosage: ()
  26. VINCRISTINE [Suspect]
     Active Substance: VINCRISTINE
     Indication: DIFFUSE LARGE B-CELL LYMPHOMA
     Dosage: CYCLICAL
     Route: 065

REACTIONS (8)
  - Condition aggravated [Unknown]
  - Lymphopenia [Unknown]
  - Lymphoproliferative disorder [Recovering/Resolving]
  - Autoimmune haemolytic anaemia [Recovering/Resolving]
  - Epstein-Barr virus infection [Unknown]
  - Combined immunodeficiency [Unknown]
  - Neutropenia [Recovering/Resolving]
  - Primary immunodeficiency syndrome [Unknown]
